FAERS Safety Report 21616013 (Version 2)
Quarter: 2025Q2

REPORT INFORMATION
  Report Type: Spontaneous
  Country: CN (occurrence: CN)
  Receive Date: 20221118
  Receipt Date: 20250429
  Transmission Date: 20250716
  Serious: Yes (Life-Threatening, Other)
  Sender: AMGEN
  Company Number: CN-AMGEN-CHNSP2022197604

PATIENT

DRUGS (3)
  1. BLINATUMOMAB [Suspect]
     Active Substance: BLINATUMOMAB
     Indication: Acute lymphocytic leukaemia
     Route: 065
  2. DEXAMETHASONE [Concomitant]
     Active Substance: DEXAMETHASONE
     Indication: Cytokine release syndrome
     Route: 048
  3. METHOTREXATE [Concomitant]
     Active Substance: METHOTREXATE
     Indication: Product used for unknown indication
     Route: 065

REACTIONS (22)
  - Hepatotoxicity [Unknown]
  - Device related thrombosis [Unknown]
  - Febrile neutropenia [Unknown]
  - Thrombocytopenia [Unknown]
  - Cytokine release syndrome [Recovered/Resolved]
  - Neutropenia [Unknown]
  - White blood cell count decreased [Unknown]
  - Seizure [Unknown]
  - Anaemia [Unknown]
  - Immune effector cell-associated neurotoxicity syndrome [Unknown]
  - Acute lymphocytic leukaemia recurrent [Unknown]
  - Hypercalcaemia [Unknown]
  - Anal inflammation [Unknown]
  - Abdominal pain [Unknown]
  - Diarrhoea [Unknown]
  - Sinus tachycardia [Unknown]
  - Vomiting [Unknown]
  - Nausea [Unknown]
  - Rash maculo-papular [Unknown]
  - Aspartate aminotransferase increased [Unknown]
  - Alanine aminotransferase increased [Unknown]
  - Pyrexia [Unknown]
